FAERS Safety Report 9800738 (Version 3)
Quarter: 2014Q1

REPORT INFORMATION
  Report Type: Spontaneous
  Country: US (occurrence: US)
  Receive Date: 20140107
  Receipt Date: 20140325
  Transmission Date: 20141002
  Serious: No
  Sender: FDA-Public Use
  Company Number: US-PFIZER INC-2014002477

PATIENT
  Age: 20 Year
  Sex: Male

DRUGS (1)
  1. REVATIO [Suspect]
     Indication: POOR PERIPHERAL CIRCULATION
     Dosage: UNK

REACTIONS (3)
  - Skin ulcer [Recovered/Resolved]
  - Expired drug administered [Recovered/Resolved]
  - Off label use [Unknown]
